FAERS Safety Report 9290000 (Version 1)
Quarter: 2013Q2

REPORT INFORMATION
  Report Type: Spontaneous
  Country: US (occurrence: US)
  Receive Date: 20130515
  Receipt Date: 20130515
  Transmission Date: 20140414
  Serious: No
  Sender: FDA-Public Use
  Company Number: US-MYLANLABS-2012S1022572

PATIENT
  Age: 84 Year
  Sex: Female

DRUGS (1)
  1. RIMSO-50 (DIMETHYL SULFOXIDE IRRIGATION USP) [Suspect]
     Indication: CYSTITIS INTERSTITIAL
     Dates: start: 20121023, end: 20121023

REACTIONS (3)
  - Diarrhoea [Recovered/Resolved]
  - Abdominal pain upper [Recovered/Resolved]
  - Asthenia [Recovered/Resolved]
